FAERS Safety Report 14738069 (Version 1)
Quarter: 2018Q2

REPORT INFORMATION
  Report Type: Spontaneous
  Country: US (occurrence: US)
  Receive Date: 20180409
  Receipt Date: 20180409
  Transmission Date: 20180711
  Serious: No
  Sender: FDA-Public Use
  Company Number: US-IPSEN BIOPHARMACEUTICALS, INC.-2018-04900

PATIENT
  Age: 52 Year
  Sex: Male

DRUGS (6)
  1. CLARITIN [Concomitant]
     Active Substance: LORATADINE
  2. JUVEDERM [Suspect]
     Active Substance: HYALURONIC ACID
     Indication: SKIN COSMETIC PROCEDURE
     Dates: start: 20180321, end: 20180321
  3. ASPIRIN. [Concomitant]
     Active Substance: ASPIRIN
  4. BENZOCAINE LIDOCAINE TETRACAINE [Suspect]
     Active Substance: BENZOCAINE\LIDOCAINE HYDROCHLORIDE\TETRACAINE
     Indication: PREMEDICATION
  5. DYSPORT [Suspect]
     Active Substance: ABOBOTULINUMTOXINA
     Indication: SKIN WRINKLING
  6. DYSPORT [Suspect]
     Active Substance: ABOBOTULINUMTOXINA
     Indication: SKIN WRINKLING
     Dosage: 108 UNITS
     Route: 030
     Dates: start: 20180321, end: 20180321

REACTIONS (5)
  - Injection site pain [None]
  - Injection site pain [Recovered/Resolved]
  - Wrong technique in product usage process [Unknown]
  - Injection site discomfort [None]
  - Muscle spasms [None]

NARRATIVE: CASE EVENT DATE: 20180321
